FAERS Safety Report 8555625-9 (Version None)
Quarter: 2012Q3

REPORT INFORMATION
  Report Type: 
  Country: None (occurrence: None)
  Receive Date: 20120731
  Receipt Date: 20120717
  Transmission Date: 20120928
  Serious: Yes (Hospitalization)
  Sender: FDA-Public Use
  Company Number: US-ELI_LILLY_AND_COMPANY-US201207005452

PATIENT
  Age: 55 Year
  Sex: Female

DRUGS (1)
  1. ZYPREXA RELPREVV [Suspect]
     Indication: SCHIZOPHRENIA
     Dosage: 405 MG, MONTHLY (1/M)
     Route: 030
     Dates: start: 20120516

REACTIONS (4)
  - OESOPHAGEAL OBSTRUCTION [None]
  - DEPRESSIVE SYMPTOM [None]
  - DIET REFUSAL [None]
  - URINARY TRACT INFECTION [None]
